FAERS Safety Report 8910673 (Version 1)
Quarter: 2012Q4

REPORT INFORMATION
  Report Type: Spontaneous
  Country: FR (occurrence: None)
  Receive Date: 20121108
  Receipt Date: 20121108
  Transmission Date: 20130627
  Serious: Yes (Other)
  Sender: FDA-Public Use
  Company Number: 2012000234

PATIENT
  Age: 77 Year
  Sex: Male

DRUGS (8)
  1. ACEON (PERINDOPRIL ERBUMINE) TABLET [Suspect]
     Indication: PRODUCT USED FOR UNKNOWN INDICATION
     Route: 048
     Dates: start: 2004, end: 20120509
  2. KARDEGIC [Concomitant]
  3. ISOPTIN [Concomitant]
  4. STAGID [Concomitant]
  5. TAHOR [Concomitant]
  6. PULMICORT (BUDESONIDE) [Concomitant]
  7. LEXOMIL (BROMAZEPAM) [Concomitant]
  8. MOPRAL (OMEPRAZOLE) [Concomitant]

REACTIONS (3)
  - Penile oedema [None]
  - Pruritus genital [None]
  - Angioedema [None]
